FAERS Safety Report 13625809 (Version 1)
Quarter: 2017Q2

REPORT INFORMATION
  Report Type: Spontaneous
  Country: CH (occurrence: CH)
  Receive Date: 20170607
  Receipt Date: 20170607
  Transmission Date: 20170830
  Serious: Yes (Hospitalization, Other)
  Sender: FDA-Public Use
  Company Number: CH-ASTRAZENECA-2017SE48467

PATIENT
  Age: 50 Year
  Sex: Male

DRUGS (2)
  1. VIT D3 SUPPLEMENT [Concomitant]
  2. CRESTOR [Suspect]
     Active Substance: ROSUVASTATIN CALCIUM
     Route: 048

REACTIONS (4)
  - Myalgia [Unknown]
  - Muscle spasms [Unknown]
  - Muscle necrosis [Unknown]
  - Muscle disorder [Unknown]

NARRATIVE: CASE EVENT DATE: 201705
